FAERS Safety Report 9009476 (Version 1)
Quarter: 2013Q1

REPORT INFORMATION
  Report Type: Spontaneous
  Country: US (occurrence: US)
  Receive Date: 20130110
  Receipt Date: 20130110
  Transmission Date: 20140127
  Serious: Yes (Hospitalization)
  Sender: FDA-Public Use
  Company Number: US-B.I. PHARMACEUTICALS,INC./RIDGEFIELD-2013-BI-00182BP

PATIENT
  Age: 56 Year
  Sex: Male

DRUGS (13)
  1. PRADAXA [Suspect]
     Indication: CEREBROVASCULAR ACCIDENT PROPHYLAXIS
     Dosage: 300 MG
     Route: 048
  2. PRADAXA [Suspect]
     Indication: ATRIAL FIBRILLATION
  3. ATACAND [Concomitant]
     Route: 048
  4. ZOLPIDEM [Concomitant]
     Route: 048
  5. ZETIA [Concomitant]
     Route: 048
  6. ABILIFY [Concomitant]
     Route: 048
  7. CARVEDILOL [Concomitant]
     Route: 048
  8. SPIRONOLACTONE/HCTZ [Concomitant]
     Route: 048
  9. ECOTRIN [Concomitant]
     Route: 048
  10. MULTAQ [Concomitant]
     Route: 048
  11. LAMICTAL [Concomitant]
     Route: 048
  12. KLONOPIN [Concomitant]
     Route: 048
  13. LOVENOX [Concomitant]
     Route: 058

REACTIONS (2)
  - Cerebral haemorrhage [Not Recovered/Not Resolved]
  - Dysarthria [Not Recovered/Not Resolved]
